FAERS Safety Report 9317633 (Version 1)
Quarter: 2013Q2

REPORT INFORMATION
  Report Type: Spontaneous
  Country: CA (occurrence: None)
  Receive Date: 20130524
  Receipt Date: 20130524
  Transmission Date: 20140414
  Serious: Yes (Other)
  Sender: FDA-Public Use
  Company Number: 2013000112

PATIENT
  Age: 66 Year
  Sex: Male
  Weight: 70.3 kg

DRUGS (2)
  1. ACEON (PERINDOPRIL ERBUMINE) [Suspect]
     Indication: PRODUCT USED FOR UNKNOWN INDICATION
     Route: 048
  2. ASPIRIN (ACETYLSALICYLIC ACID) [Concomitant]
     Route: 048

REACTIONS (3)
  - Migraine with aura [None]
  - Dizziness [None]
  - Headache [None]
